FAERS Safety Report 21005508 (Version 1)
Quarter: 2022Q2

REPORT INFORMATION
  Report Type: Report from Study
  Country: CN (occurrence: CN)
  Receive Date: 20220624
  Receipt Date: 20220624
  Transmission Date: 20220721
  Serious: Yes (Other)
  Sender: FDA-Public Use
  Company Number: CN-SA-2022SA237881

PATIENT

DRUGS (4)
  1. CLOPIDOGREL BISULFATE [Suspect]
     Active Substance: CLOPIDOGREL BISULFATE
     Indication: Venous stenosis
     Dosage: 75 MG
  2. ASPIRIN [Suspect]
     Active Substance: ASPIRIN
     Indication: Venous stenosis
     Dosage: 100 MG
  3. UNSPECIFIED INGREDIENT [Concomitant]
     Active Substance: UNSPECIFIED INGREDIENT
     Indication: Prophylaxis
     Dosage: 0.6 ML, Q12H
     Route: 058
  4. MANNITOL [Concomitant]
     Active Substance: MANNITOL
     Indication: Prophylaxis
     Dosage: 125 ML, Q6H
     Route: 042

REACTIONS (1)
  - Vascular stent thrombosis [Unknown]
